FAERS Safety Report 7908724 (Version 3)
Quarter: 2013Q1

REPORT INFORMATION
  Report Type: Spontaneous
  Country: US (occurrence: None)
  Receive Date: 20110325
  Receipt Date: 20130222
  Transmission Date: 20140127
  Serious: Yes (Hospitalization, Other)
  Sender: FDA-Public Use
  Company Number: ACO_22293_2011

PATIENT
  Age: 70 Year
  Sex: Female
  Weight: 74.8 kg

DRUGS (14)
  1. AMPYRA [Suspect]
     Indication: GAIT DISTURBANCE
     Dosage: 10 MG, Q 12 HRS, ORAL, 10 MG, QD, ORAL, 10 MG, Q 12 HRS, ORAL
     Route: 048
     Dates: start: 201102, end: 201102
  2. REBIF [Concomitant]
  3. BACLOFEN [Concomitant]
  4. REQUIP [Concomitant]
  5. LOSARTAN POTASSIUM [Concomitant]
  6. HYDROCHLOROTHIAZIDE [Concomitant]
  7. POTASSIUM /00031402/ (POTASSIUM CHLORIDE) [Concomitant]
  8. PLAVIX [Concomitant]
  9. CYMBALTA [Concomitant]
  10. LEVOXYL [Concomitant]
  11. TYLENOL W/CODEINE (CODEINE PHOSPHATE, PARACETAMOL) [Concomitant]
  12. VITAMIN D (ERGOCALCIFEROL) [Concomitant]
  13. ENTOCORT EC [Concomitant]
  14. CLONAZEPAM [Concomitant]

REACTIONS (24)
  - Adverse drug reaction [None]
  - Hypertension [None]
  - Mental status changes [None]
  - Confusional state [None]
  - Tremor [None]
  - Dizziness [None]
  - Hyperventilation [None]
  - Neuromyopathy [None]
  - Dyskinesia [None]
  - Agitation [None]
  - Anxiety [None]
  - Feeling hot [None]
  - Proctalgia [None]
  - Injection site erythema [None]
  - Fatigue [None]
  - Nausea [None]
  - Inappropriate schedule of drug administration [None]
  - Contusion [None]
  - Grimacing [None]
  - Partial seizures [None]
  - Abnormal behaviour [None]
  - Therapeutic response unexpected [None]
  - Abdominal pain [None]
  - Dyspepsia [None]
